FAERS Safety Report 13054520 (Version 2)
Quarter: 2016Q4

REPORT INFORMATION
  Report Type: Spontaneous
  Country: DE (occurrence: DE)
  Receive Date: 20161222
  Receipt Date: 20161227
  Transmission Date: 20170207
  Serious: Yes (Hospitalization)
  Sender: FDA-Public Use
  Company Number: DE-HIKMA PHARMACEUTICALS CO. LTD-2016DE013801

PATIENT

DRUGS (3)
  1. REMSIMA [Suspect]
     Active Substance: INFLIXIMAB
     Dosage: 300 UNK, UNK
     Route: 042
     Dates: start: 20161214, end: 20161214
  2. STEROID ANTIBACTERIALS [Concomitant]
     Active Substance: UNSPECIFIED INGREDIENT
  3. REMSIMA [Suspect]
     Active Substance: INFLIXIMAB
     Indication: CROHN^S DISEASE
     Dosage: UNK UNK, SINGLE
     Route: 042

REACTIONS (3)
  - Hot flush [Recovered/Resolved]
  - Drug hypersensitivity [Recovered/Resolved]
  - Restlessness [Recovered/Resolved]

NARRATIVE: CASE EVENT DATE: 20161214
